FAERS Safety Report 8911338 (Version 1)
Quarter: 2012Q4

REPORT INFORMATION
  Report Type: 
  Country: US (occurrence: US)
  Receive Date: 20121116
  Receipt Date: 20121116
  Transmission Date: 20130627
  Serious: No
  Sender: FDA-Public Use
  Company Number: US-GLAXOSMITHKLINE-A0997884A

PATIENT
  Sex: Male

DRUGS (2)
  1. VOTRIENT [Suspect]
     Indication: PRODUCT USED FOR UNKNOWN INDICATION
     Dosage: 800MG Per day
     Route: 048
     Dates: start: 20120801
  2. MAGNESIUM [Suspect]
     Route: 065

REACTIONS (6)
  - Hepatic function abnormal [Unknown]
  - Diarrhoea [Unknown]
  - Urticaria [Unknown]
  - Contusion [Unknown]
  - Nausea [Unknown]
  - Blood creatinine increased [Unknown]
